FAERS Safety Report 17047562 (Version 1)
Quarter: 2019Q4

REPORT INFORMATION
  Report Type: Spontaneous
  Country: JP (occurrence: JP)
  Receive Date: 20191119
  Receipt Date: 20191119
  Transmission Date: 20200122
  Serious: Yes (Other)
  Sender: FDA-Public Use
  Company Number: JP-PFIZER INC-2019492016

PATIENT
  Age: 8 Decade
  Sex: Male

DRUGS (1)
  1. INLYTA [Suspect]
     Active Substance: AXITINIB
     Indication: RENAL CELL CARCINOMA
     Dosage: 10 MG (5MGX2), UNK
     Route: 048

REACTIONS (5)
  - Neuropathy peripheral [Unknown]
  - Stomatitis [Unknown]
  - Discomfort [Unknown]
  - Nausea [Recovering/Resolving]
  - Palmar-plantar erythrodysaesthesia syndrome [Unknown]
